FAERS Safety Report 5018717-7 (Version None)
Quarter: 2006Q2

REPORT INFORMATION
  Report Type: 
  Country: None (occurrence: None)
  Receive Date: 20060606
  Receipt Date: 20060301
  Transmission Date: 20061013
  Serious: Yes (Hospitalization)
  Sender: FDA-Public Use
  Company Number: US-ROCHE-438833

PATIENT
  Age: 24 Year
  Sex: Male
  Weight: 81.6 kg

DRUGS (3)
  1. ACCUTANE [Suspect]
     Indication: ACNE
     Route: 048
     Dates: start: 19940615, end: 19940615
  2. ACCUTANE [Suspect]
     Route: 048
     Dates: start: 19970615, end: 19971215
  3. ACCUTANE [Suspect]
     Route: 048
     Dates: start: 20020715, end: 20030115

REACTIONS (25)
  - ANXIETY [None]
  - ARTHRALGIA [None]
  - ARTHRITIS [None]
  - ARTHRITIS REACTIVE [None]
  - ATTENTION DEFICIT/HYPERACTIVITY DISORDER [None]
  - COLITIS [None]
  - CROHN'S DISEASE [None]
  - DECREASED APPETITE [None]
  - DECREASED INTEREST [None]
  - DEPRESSED MOOD [None]
  - DEPRESSION [None]
  - DISTRACTIBILITY [None]
  - EMOTIONAL DISTRESS [None]
  - FATIGUE [None]
  - FLIGHT OF IDEAS [None]
  - GALLBLADDER POLYP [None]
  - GENERALISED ANXIETY DISORDER [None]
  - INCREASED APPETITE [None]
  - INFLAMMATORY BOWEL DISEASE [None]
  - IRRITABLE BOWEL SYNDROME [None]
  - NEPHROLITHIASIS [None]
  - OSTEOPOROSIS [None]
  - SELF ESTEEM INFLATED [None]
  - SLEEP DISORDER [None]
  - SPLENOMEGALY [None]
